FAERS Safety Report 10216081 (Version 1)
Quarter: 2014Q2

REPORT INFORMATION
  Report Type: Spontaneous
  Country: US (occurrence: None)
  Receive Date: 20140602
  Receipt Date: 20140602
  Transmission Date: 20141212
  Serious: Yes (Hospitalization)
  Sender: FDA-Public Use
  Company Number: 2014P1004541

PATIENT
  Age: 71 Year
  Sex: Female
  Weight: 69.76 kg

DRUGS (8)
  1. DIGOXIN [Suspect]
     Indication: ARRHYTHMIA
     Route: 048
     Dates: start: 20120601, end: 20131205
  2. AMBRISENTAN [Suspect]
     Indication: PULMONARY ARTERIAL HYPERTENSION
     Route: 048
     Dates: start: 20130627, end: 20130906
  3. TADALAFIL [Suspect]
     Indication: PULMONARY ARTERIAL HYPERTENSION
     Route: 048
     Dates: start: 20130907
  4. TORASEMIDE [Concomitant]
  5. SPIRONOLACTONE [Concomitant]
  6. METOLAZONE [Concomitant]
  7. WARFARIN SODIUM [Concomitant]
  8. PROPAFENONE HYDROCHLORIDE [Concomitant]

REACTIONS (7)
  - Dizziness [None]
  - Bradycardia [None]
  - Blood potassium increased [None]
  - Haematocrit decreased [None]
  - Toxicity to various agents [None]
  - Cardiac failure [None]
  - Renal failure acute [None]
